FAERS Safety Report 4396850-0 (Version None)
Quarter: 2004Q3

REPORT INFORMATION
  Report Type: 
  Country: None (occurrence: None)
  Receive Date: 20040708
  Receipt Date: 20040701
  Transmission Date: 20050211
  Serious: Yes (Other)
  Sender: FDA-Public Use
  Company Number: DEU-2004-0000887

PATIENT
  Age: 28 Year
  Sex: Female

DRUGS (9)
  1. OXYCODONE HCL [Suspect]
     Indication: PAIN
     Dosage: 20 MG, BID, ORAL
     Route: 048
  2. TRAMADOL HCL [Suspect]
     Indication: PAIN
     Dosage: 200 MG, TID
  3. TERBUTALINE SULFATE [Concomitant]
  4. GUAIFENESIN (GUAIFENESIN) [Concomitant]
  5. SPIRO COMP. (FUROSEMIDE, SPIRONOLACTONE) [Concomitant]
  6. VERAPAMIL HYDROCHLORIDE (VERAPAML HYDROCHLORIDE) [Concomitant]
  7. CLONIDINE [Concomitant]
  8. DIURETICS [Concomitant]
  9. CORTISONE (CORTISONE) [Concomitant]

REACTIONS (15)
  - ANXIETY [None]
  - APATHY [None]
  - CHILLS [None]
  - COLD SWEAT [None]
  - CRYING [None]
  - DRUG WITHDRAWAL SYNDROME [None]
  - FATIGUE [None]
  - FEAR [None]
  - FEELING ABNORMAL [None]
  - HYPERHIDROSIS [None]
  - HYPERSOMNIA [None]
  - INFLUENZA LIKE ILLNESS [None]
  - MEDICATION ERROR [None]
  - NAUSEA [None]
  - RESTLESSNESS [None]
